FAERS Safety Report 14037076 (Version 1)
Quarter: 2017Q4

REPORT INFORMATION
  Report Type: Report from Study
  Country: CN (occurrence: CN)
  Receive Date: 20171004
  Receipt Date: 20171004
  Transmission Date: 20180321
  Serious: Yes (Death)
  Sender: FDA-Public Use
  Company Number: CN-ROCHE-1930290

PATIENT
  Age: 59 Year
  Sex: Male
  Weight: 62 kg

DRUGS (1)
  1. AVASTIN [Suspect]
     Active Substance: BEVACIZUMAB
     Indication: RECTAL CANCER
     Route: 041
     Dates: start: 20161209, end: 20170712

REACTIONS (8)
  - Drug ineffective [Unknown]
  - Asthenia [Unknown]
  - Ascites [Fatal]
  - Decreased appetite [Unknown]
  - Hepatic function abnormal [Unknown]
  - Vomiting [Unknown]
  - Drug resistance [Fatal]
  - Motion sickness [Unknown]

NARRATIVE: CASE EVENT DATE: 20170907
